FAERS Safety Report 11893413 (Version 1)
Quarter: 2016Q1

REPORT INFORMATION
  Report Type: Spontaneous
  Country: IT (occurrence: IT)
  Receive Date: 20160106
  Receipt Date: 20160106
  Transmission Date: 20160526
  Serious: Yes (Other)
  Sender: FDA-Public Use
  Company Number: PHHY2015IT171803

PATIENT
  Age: 60 Year
  Sex: Female

DRUGS (1)
  1. PRAMIPEXOLE. [Suspect]
     Active Substance: PRAMIPEXOLE
     Indication: PARKINSON^S DISEASE
     Dosage: 4.5 MG, QD
     Route: 065

REACTIONS (4)
  - Pain [Recovering/Resolving]
  - Fatigue [Recovering/Resolving]
  - Drug withdrawal syndrome [Recovering/Resolving]
  - Depression [Recovering/Resolving]
